FAERS Safety Report 5656062-7 (Version None)
Quarter: 2008Q1

REPORT INFORMATION
  Report Type: 
  Country: None (occurrence: None)
  Receive Date: 20080307
  Receipt Date: 20080303
  Transmission Date: 20080703
  Serious: Yes (Other)
  Sender: FDA-Public Use
  Company Number: GB-PFIZER INC-2008020199

PATIENT
  Age: 42 Year
  Sex: Female
  Weight: 69 kg

DRUGS (4)
  1. CHANTIX [Suspect]
     Indication: SMOKING CESSATION THERAPY
     Route: 048
     Dates: start: 20080201, end: 20080207
  2. CERAZETTE [Concomitant]
     Route: 048
  3. LANSOPRAZOLE [Concomitant]
     Route: 048
  4. RANITIDINE [Concomitant]
     Route: 048

REACTIONS (8)
  - CRYING [None]
  - DEPRESSED MOOD [None]
  - DIARRHOEA [None]
  - HEADACHE [None]
  - NAUSEA [None]
  - NIGHTMARE [None]
  - RASH [None]
  - VOMITING [None]
